FAERS Safety Report 7022083-5 (Version None)
Quarter: 2010Q3

REPORT INFORMATION
  Report Type: 
  Country: None (occurrence: None)
  Receive Date: 20100930
  Receipt Date: 20100928
  Transmission Date: 20110219
  Serious: Yes (Hospitalization, Other)
  Sender: FDA-Public Use
  Company Number: IT-BRISTOL-MYERS SQUIBB COMPANY-15297930

PATIENT
  Age: 85 Year
  Sex: Male

DRUGS (5)
  1. COUMADIN [Suspect]
     Dosage: 1 DF: 1 POSOLOGIC UNIT INTERRUPTED ON 24-AUG-2010
     Dates: start: 20080101
  2. SEROQUEL [Concomitant]
     Dosage: 25 MG .1 DF:3 POSOLOGIC UNITS TABS
     Route: 048
  3. LEXOTAN [Concomitant]
     Dosage: 1 DF: 45 DROPS
  4. ISOPTIN [Concomitant]
     Dosage: 1 DF: 1 POSOLOGIC UNIT
  5. DONEPEZIL HCL [Concomitant]
     Dosage: 1 DF: 1 POSOLOGIC UNIT

REACTIONS (3)
  - ANAEMIA [None]
  - HAEMATOCHEZIA [None]
  - HEPATIC CYST [None]
